FAERS Safety Report 9190085 (Version 1)
Quarter: 2013Q1

REPORT INFORMATION
  Report Type: Spontaneous
  Country: US (occurrence: US)
  Receive Date: 20130326
  Receipt Date: 20130326
  Transmission Date: 20140127
  Serious: No
  Sender: FDA-Public Use
  Company Number: US-PFIZER INC-2013096439

PATIENT
  Sex: Male

DRUGS (1)
  1. SERTRALINE [Suspect]
     Dosage: UNK

REACTIONS (2)
  - Tongue haemorrhage [Unknown]
  - Glossodynia [Unknown]
